FAERS Safety Report 9473109 (Version 2)
Quarter: 2013Q3

REPORT INFORMATION
  Report Type: Spontaneous
  Country: US (occurrence: US)
  Receive Date: 20130823
  Receipt Date: 20130823
  Transmission Date: 20140515
  Serious: Yes (Other)
  Sender: FDA-Public Use
  Company Number: US-BRISTOL-MYERS SQUIBB COMPANY-17452723

PATIENT
  Age: 66 Year
  Sex: Male
  Weight: 66.66 kg

DRUGS (4)
  1. SPRYCEL [Suspect]
     Indication: CHRONIC MYELOID LEUKAEMIA
     Route: 048
     Dates: start: 20120205
  2. ATENOLOL [Concomitant]
  3. IODINE [Concomitant]
  4. VITAMIN D [Concomitant]

REACTIONS (1)
  - Pneumonia [Recovered/Resolved]
